FAERS Safety Report 12429188 (Version 2)
Quarter: 2016Q3

REPORT INFORMATION
  Report Type: Spontaneous
  Country: US (occurrence: US)
  Receive Date: 20160602
  Receipt Date: 20160705
  Transmission Date: 20161109
  Serious: Yes (Other)
  Sender: FDA-Public Use
  Company Number: US-ASTRAZENECA-2016SE57412

PATIENT
  Age: 55 Year
  Sex: Female
  Weight: 64.6 kg

DRUGS (10)
  1. SYNTHROID [Concomitant]
     Active Substance: LEVOTHYROXINE SODIUM
     Indication: THYROID DISORDER
     Route: 048
     Dates: start: 2008
  2. VERAPAMIL ER [Concomitant]
     Active Substance: VERAPAMIL HYDROCHLORIDE
     Indication: MIGRAINE PROPHYLAXIS
     Dosage: 180.0MG UNKNOWN
     Route: 048
     Dates: start: 2009
  3. LIPITOR [Concomitant]
     Active Substance: ATORVASTATIN CALCIUM
     Indication: BLOOD CHOLESTEROL ABNORMAL
     Dosage: 20.0MG UNKNOWN
     Route: 048
     Dates: start: 2006
  4. IMITREX [Concomitant]
     Active Substance: SUMATRIPTAN SUCCINATE
     Indication: MIGRAINE
     Dosage: 6.0MG AS REQUIRED
     Route: 058
  5. BYDUREON [Suspect]
     Active Substance: EXENATIDE
     Indication: DIABETES MELLITUS
     Route: 058
     Dates: start: 20160205
  6. GLUCOPHAGE XR [Concomitant]
     Active Substance: METFORMIN HYDROCHLORIDE
     Indication: DIABETES MELLITUS
     Route: 048
  7. LANTUS [Concomitant]
     Active Substance: INSULIN GLARGINE
     Indication: DIABETES MELLITUS
     Route: 058
  8. HUMALOG [Concomitant]
     Active Substance: INSULIN LISPRO
     Indication: DIABETES MELLITUS
     Dosage: 7-8 UNITS SUBCUTANEOUSLY BEFORE MEALS
     Route: 058
  9. HUMALOG [Concomitant]
     Active Substance: INSULIN LISPRO
     Indication: DIABETES MELLITUS
     Dosage: 10 UNITS SUBCUTANEOUSLY BEFORE MEAL
     Route: 058
     Dates: start: 20160524, end: 20160524
  10. BYETTA [Suspect]
     Active Substance: EXENATIDE
     Indication: DIABETES MELLITUS
     Dosage: TWO TIMES A DAY
     Route: 058
     Dates: start: 2010, end: 2013

REACTIONS (14)
  - Intentional product misuse [Unknown]
  - Basal cell carcinoma [Unknown]
  - Squamous cell carcinoma [Unknown]
  - Glycosylated haemoglobin increased [Recovering/Resolving]
  - Drug dose omission [Not Recovered/Not Resolved]
  - Injection site extravasation [Unknown]
  - Malignant melanoma [Unknown]
  - Appetite disorder [Not Recovered/Not Resolved]
  - Needle issue [Unknown]
  - Blood glucose fluctuation [Not Recovered/Not Resolved]
  - Injection site mass [Not Recovered/Not Resolved]
  - Pustular psoriasis [Not Recovered/Not Resolved]
  - Amnesia [Unknown]
  - Pernicious anaemia [Not Recovered/Not Resolved]

NARRATIVE: CASE EVENT DATE: 2011
